FAERS Safety Report 8143941-4 (Version None)
Quarter: 2012Q1

REPORT INFORMATION
  Report Type: 
  Country: None (occurrence: None)
  Receive Date: 20120217
  Receipt Date: 20120207
  Transmission Date: 20120608
  Serious: Yes (Other)
  Sender: FDA-Public Use
  Company Number: FR-JNJFOC-20120205070

PATIENT
  Age: 54 Year
  Sex: Male

DRUGS (8)
  1. REMICADE [Suspect]
     Indication: RHEUMATOID ARTHRITIS
     Route: 042
     Dates: start: 20050526, end: 20061211
  2. ACTEMRA [Suspect]
     Indication: RHEUMATOID ARTHRITIS
     Route: 065
  3. PREDNISONE TAB [Concomitant]
     Route: 065
  4. SOLU-MEDROL [Suspect]
     Indication: PRODUCT USED FOR UNKNOWN INDICATION
     Route: 040
  5. ARAVA [Suspect]
     Indication: PRODUCT USED FOR UNKNOWN INDICATION
     Route: 065
     Dates: start: 20050401, end: 20070101
  6. MABTHERA [Suspect]
     Indication: RHEUMATOID ARTHRITIS
     Route: 065
     Dates: start: 20070201, end: 20110201
  7. CYCLOPHOSPHAMIDE [Suspect]
     Indication: RETINAL VASCULITIS
     Route: 065
     Dates: start: 20041201, end: 20050527
  8. METHOTREXATE SODIUM [Concomitant]
     Route: 065

REACTIONS (2)
  - DRUG EFFECT DECREASED [None]
  - BLADDER CANCER [None]
